FAERS Safety Report 23219033 (Version 1)
Quarter: 2023Q4

REPORT INFORMATION
  Report Type: Other
  Country: US (occurrence: US)
  Receive Date: 20231122
  Receipt Date: 20231122
  Transmission Date: 20240110
  Serious: Yes (Other)
  Sender: FDA-Public Use
  Company Number: US-ALVOGEN-2023092516

PATIENT
  Age: 69 Year
  Sex: Female

DRUGS (1)
  1. VENLAFAXINE [Suspect]
     Active Substance: VENLAFAXINE HYDROCHLORIDE
     Indication: Depression
     Dosage: UNKNOWN QUANTITIES
     Route: 048

REACTIONS (8)
  - Arrhythmia [Recovering/Resolving]
  - Generalised tonic-clonic seizure [Unknown]
  - Seizure [Unknown]
  - Electrocardiogram QRS complex prolonged [Recovering/Resolving]
  - Overdose [Unknown]
  - Metabolic acidosis [Unknown]
  - Sinus tachycardia [Unknown]
  - Electrocardiogram change [Unknown]
